FAERS Safety Report 9587640 (Version 1)
Quarter: 2013Q4

REPORT INFORMATION
  Report Type: Spontaneous
  Country: US (occurrence: US)
  Receive Date: 20131003
  Receipt Date: 20131003
  Transmission Date: 20140711
  Serious: Yes (Hospitalization)
  Sender: FDA-Public Use
  Company Number: US-COVIDIEN/TYCO HEALTHCARE/MALLINCKRODT-T201204443

PATIENT
  Age: 45 Year
  Sex: Female

DRUGS (9)
  1. EXALGO EXTENDED RELEASE [Suspect]
     Indication: PRODUCT USED FOR UNKNOWN INDICATION
     Dosage: UNK
  2. TIZANIDINE [Suspect]
     Indication: PRODUCT USED FOR UNKNOWN INDICATION
     Dosage: UNK
  3. AMITRIPTYLINE [Suspect]
     Indication: PRODUCT USED FOR UNKNOWN INDICATION
     Dosage: UNK
  4. ZOLPIDEM [Suspect]
     Dosage: UNK
  5. BENZODIAZEPINE DERIVATIVES [Concomitant]
     Dosage: 1 MG
  6. ATENOLOL [Concomitant]
     Dosage: UNK
  7. TOPIRAMATE [Concomitant]
     Indication: HEADACHE
     Dosage: UNK
  8. OXYCODONE [Concomitant]
     Dosage: UNK
  9. CITALOPRAM [Concomitant]
     Dosage: UNK

REACTIONS (3)
  - Somnolence [Recovered/Resolved]
  - Vomiting [Unknown]
  - Diarrhoea [Unknown]
